FAERS Safety Report 12102864 (Version 2)
Quarter: 2019Q3

REPORT INFORMATION
  Report Type: Spontaneous
  Country: BR (occurrence: BR)
  Receive Date: 20160222
  Receipt Date: 20190710
  Transmission Date: 20191004
  Serious: Yes (Disabling, Other)
  Sender: FDA-Public Use
  Company Number: BR-GILEAD-2016-0199461

PATIENT
  Age: 43 Year
  Sex: Female
  Weight: 77 kg

DRUGS (8)
  1. PURAN [Concomitant]
     Active Substance: LEVOTHYROXINE SODIUM
     Indication: THYROID DISORDER
     Dosage: UNK
     Route: 065
  2. DIAZEPAM. [Concomitant]
     Active Substance: DIAZEPAM
     Dosage: UNK
  3. OMEPRAZOLE. [Concomitant]
     Active Substance: OMEPRAZOLE
     Indication: PRODUCT USED FOR UNKNOWN INDICATION
     Dosage: UNK
  4. NOVOLIN [Concomitant]
     Active Substance: INSULIN HUMAN
     Indication: PRODUCT USED FOR UNKNOWN INDICATION
     Dosage: UNK
  5. DAKLINZA [Suspect]
     Active Substance: DACLATASVIR
     Indication: CHRONIC HEPATITIS C
     Dosage: 60 MG, QD
     Route: 065
     Dates: start: 20151221
  6. DRAMAMINE [Concomitant]
     Active Substance: DIMENHYDRINATE
     Indication: PRODUCT USED FOR UNKNOWN INDICATION
     Dosage: UNK
     Route: 065
  7. SOVALDI [Suspect]
     Active Substance: SOFOSBUVIR
     Indication: CHRONIC HEPATITIS C
     Dosage: 400 MG, UNK
     Route: 065
     Dates: start: 20151221
  8. DIPIRONA [Concomitant]
     Active Substance: METAMIZOLE
     Indication: PAIN
     Dosage: UNK

REACTIONS (34)
  - Fatigue [Not Recovered/Not Resolved]
  - Nausea [Unknown]
  - Headache [Unknown]
  - Influenza [Unknown]
  - Sleep disorder [Unknown]
  - Migraine [Not Recovered/Not Resolved]
  - Myalgia [Unknown]
  - Epistaxis [Unknown]
  - Dyspnoea [Unknown]
  - Arthralgia [Unknown]
  - Apathy [Unknown]
  - Dry eye [Unknown]
  - Nasal congestion [Unknown]
  - Abdominal pain [Unknown]
  - Cough [Unknown]
  - Asthenia [Unknown]
  - Non-cardiac chest pain [Unknown]
  - Chills [Unknown]
  - Anxiety [Unknown]
  - Alopecia [Unknown]
  - Insomnia [Not Recovered/Not Resolved]
  - Depression [Unknown]
  - Dizziness [Unknown]
  - Eye pain [Unknown]
  - Bone pain [Not Recovered/Not Resolved]
  - Fall [Unknown]
  - Urinary tract infection [Unknown]
  - Vision blurred [Unknown]
  - Mood altered [Unknown]
  - Dry mouth [Not Recovered/Not Resolved]
  - Irritability [Unknown]
  - Throat irritation [Unknown]
  - Night sweats [Unknown]
  - Back pain [Unknown]

NARRATIVE: CASE EVENT DATE: 20151221
